FAERS Safety Report 16204263 (Version 1)
Quarter: 2019Q2

REPORT INFORMATION
  Report Type: Spontaneous
  Country: ES (occurrence: ES)
  Receive Date: 20190416
  Receipt Date: 20190416
  Transmission Date: 20190711
  Serious: Yes (Other)
  Sender: FDA-Public Use
  Company Number: ES-TEVA-2019-ES-1038177

PATIENT
  Age: 71 Year
  Sex: Female

DRUGS (9)
  1. SIMVASTATINA (1023A) [Concomitant]
     Active Substance: SIMVASTATIN
  2. VENLAFAXINA (2664A) [Concomitant]
     Active Substance: VENLAFAXINE HYDROCHLORIDE
  3. LISINOPRIL (2222A) [Concomitant]
     Active Substance: LISINOPRIL
  4. HIDROCLOROTIAZIDA (1343A) [Concomitant]
     Active Substance: HYDROCHLOROTHIAZIDE
  5. OMEPRAZOL (2141A) [Concomitant]
     Active Substance: OMEPRAZOLE
  6. DIAZEPAM (730A) [Concomitant]
     Active Substance: DIAZEPAM
  7. IBUPROFENO (1769A) [Suspect]
     Active Substance: IBUPROFEN
     Indication: PAIN
     Route: 065
     Dates: start: 20190307, end: 20190329
  8. CINITAPRIDA (2408A) [Concomitant]
  9. PARACETAMOL (12A) [Concomitant]
     Active Substance: ACETAMINOPHEN

REACTIONS (2)
  - Rash generalised [Recovered/Resolved]
  - Pruritus [Recovered/Resolved]

NARRATIVE: CASE EVENT DATE: 20190329
